FAERS Safety Report 7691899-4 (Version None)
Quarter: 2011Q3

REPORT INFORMATION
  Report Type: 
  Country: None (occurrence: None)
  Receive Date: 20110818
  Receipt Date: 20110720
  Transmission Date: 20111222
  Serious: Yes (Death, Hospitalization)
  Sender: FDA-Public Use
  Company Number: PHHO2011US12468

PATIENT
  Sex: Male

DRUGS (2)
  1. SORAFENIB [Suspect]
     Indication: THYROID CANCER
     Dosage: UNK
     Dates: start: 20110429, end: 20110718
  2. AFINITOR [Suspect]
     Indication: THYROID CANCER
     Dosage: UNK
     Dates: start: 20110429, end: 20110718

REACTIONS (3)
  - MULTI-ORGAN FAILURE [None]
  - CARDIAC ARREST [None]
  - SEPTIC SHOCK [None]
